FAERS Safety Report 10020927 (Version 3)
Quarter: 2014Q1

REPORT INFORMATION
  Report Type: Spontaneous
  Country: DE (occurrence: DE)
  Receive Date: 20140319
  Receipt Date: 20140324
  Transmission Date: 20141002
  Serious: No
  Sender: FDA-Public Use
  Company Number: DE-UCBSA-114205

PATIENT
  Age: 69 Year
  Sex: Male
  Weight: 73 kg

DRUGS (5)
  1. CIMZIA [Suspect]
     Indication: RHEUMATOID ARTHRITIS
     Route: 058
     Dates: start: 20131214, end: 20131228
  2. CIMZIA [Suspect]
     Indication: RHEUMATOID ARTHRITIS
     Dates: start: 20140111, end: 20140125
  3. FOLIC ACID [Concomitant]
     Dosage: DOSE PER INTAKE: 5
     Route: 048
     Dates: start: 200603
  4. PREDNISOLONE [Concomitant]
     Indication: RHEUMATOID ARTHRITIS
     Dosage: DOSE PER INTAKE : 5
     Route: 048
     Dates: start: 200603
  5. MTX HEXAL [Concomitant]
     Dosage: DOSE PER INTAKE:15
     Route: 048
     Dates: start: 200603

REACTIONS (1)
  - Drug ineffective [Recovered/Resolved]
